FAERS Safety Report 12435047 (Version 1)
Quarter: 2016Q2

REPORT INFORMATION
  Report Type: Spontaneous
  Country: US (occurrence: US)
  Receive Date: 20160603
  Receipt Date: 20160603
  Transmission Date: 20160815
  Serious: No
  Sender: FDA-Public Use
  Company Number: US-ROCHE-1685761

PATIENT
  Sex: Female

DRUGS (6)
  1. OMEPRAZOL [Concomitant]
     Active Substance: OMEPRAZOLE
     Indication: GASTROOESOPHAGEAL REFLUX DISEASE
     Route: 065
     Dates: start: 2014
  2. PHENADOZ [Concomitant]
     Active Substance: PROMETHAZINE HYDROCHLORIDE
     Indication: NAUSEA
     Route: 065
     Dates: start: 1999
  3. ADDERALL [Concomitant]
     Active Substance: AMPHETAMINE ASPARTATE\AMPHETAMINE SULFATE\DEXTROAMPHETAMINE SACCHARATE\DEXTROAMPHETAMINE SULFATE
     Route: 065
  4. CLONAZEPAM. [Suspect]
     Active Substance: CLONAZEPAM
     Indication: FIBROMYALGIA
     Dosage: START  DATE : APPROXIMATELY SOMEWHERE IN 1975 OR 1976,
     Route: 065
  5. DURAGESIC [Concomitant]
     Active Substance: FENTANYL
     Indication: PAIN
     Dosage: 74/48 HOURS
     Route: 065
     Dates: start: 2000
  6. SUCRALFATE. [Concomitant]
     Active Substance: SUCRALFATE
     Route: 065

REACTIONS (7)
  - Pain in extremity [Not Recovered/Not Resolved]
  - Pain [Not Recovered/Not Resolved]
  - Abasia [Not Recovered/Not Resolved]
  - Musculoskeletal pain [Not Recovered/Not Resolved]
  - Neck pain [Not Recovered/Not Resolved]
  - Back pain [Not Recovered/Not Resolved]
  - Burning sensation [Not Recovered/Not Resolved]

NARRATIVE: CASE EVENT DATE: 1975
